FAERS Safety Report 7768864-1 (Version None)
Quarter: 2011Q3

REPORT INFORMATION
  Report Type: 
  Country: None (occurrence: None)
  Receive Date: 20110922
  Receipt Date: 20100802
  Transmission Date: 20111222
  Serious: No
  Sender: FDA-Public Use
  Company Number: US-ASTRAZENECA-2010SE36037

PATIENT
  Age: 55 Year
  Sex: Female
  Weight: 79.8 kg

DRUGS (8)
  1. SEROQUEL [Suspect]
     Indication: BIPOLAR I DISORDER
     Route: 048
     Dates: start: 20030101
  2. SEROQUEL [Suspect]
     Indication: BIPOLAR DISORDER
     Route: 048
     Dates: start: 20030101
  3. SEROQUEL [Suspect]
     Route: 048
     Dates: end: 20100713
  4. INHALER [Concomitant]
     Indication: CHRONIC OBSTRUCTIVE PULMONARY DISEASE
  5. XANAX [Concomitant]
     Indication: ANXIETY
  6. PRINZIDE [Concomitant]
     Indication: HYPERTENSION
  7. SEROQUEL [Suspect]
     Route: 048
     Dates: end: 20100713
  8. INHALER [Concomitant]
     Indication: EMPHYSEMA

REACTIONS (6)
  - HYPERTENSION [None]
  - INSOMNIA [None]
  - DEPRESSION [None]
  - MOOD ALTERED [None]
  - WRIST FRACTURE [None]
  - FATIGUE [None]
